FAERS Safety Report 6942111-2 (Version None)
Quarter: 2010Q3

REPORT INFORMATION
  Report Type: 
  Country: None (occurrence: None)
  Receive Date: 20100826
  Receipt Date: 20100819
  Transmission Date: 20110219
  Serious: Yes (Other)
  Sender: FDA-Public Use
  Company Number: BR-ASTRAZENECA-2010SE39034

PATIENT
  Age: 32 Year
  Sex: Male

DRUGS (3)
  1. SEROQUEL [Suspect]
     Dosage: 5 TABLETS
     Route: 048
     Dates: start: 20100817
  2. LITHIUM CARBONATE [Suspect]
     Dosage: 5 TABLET
     Route: 048
     Dates: start: 20100817
  3. DIAZEPAM [Suspect]
     Dosage: 10 TABLETS
     Route: 048
     Dates: start: 20100817

REACTIONS (3)
  - OVERDOSE [None]
  - SOMNOLENCE [None]
  - SUICIDE ATTEMPT [None]
